FAERS Safety Report 18962700 (Version 1)
Quarter: 2021Q1

REPORT INFORMATION
  Report Type: Spontaneous
  Country: US (occurrence: US)
  Receive Date: 20210302
  Receipt Date: 20210302
  Transmission Date: 20210420
  Serious: No
  Sender: FDA-Public Use
  Company Number: None

PATIENT
  Age: 53 Year
  Sex: Male
  Weight: 77.4 kg

DRUGS (1)
  1. QUETIAPINE 100 MG TABLETS [Suspect]
     Active Substance: QUETIAPINE
     Indication: INITIAL INSOMNIA
     Dosage: ?          QUANTITY:1 TABLET(S);?
     Route: 048
     Dates: start: 20210101

REACTIONS (3)
  - Dry mouth [None]
  - Insomnia [None]
  - Therapeutic product effect decreased [None]

NARRATIVE: CASE EVENT DATE: 20210101
